FAERS Safety Report 7024776-2 (Version None)
Quarter: 2010Q4

REPORT INFORMATION
  Report Type: 
  Country: None (occurrence: None)
  Receive Date: 20101001
  Receipt Date: 20100922
  Transmission Date: 20110411
  Serious: Yes (Hospitalization, Other)
  Sender: FDA-Public Use
  Company Number: IE-ABBOTT-10P-167-0672213-00

PATIENT
  Age: 48 Year
  Sex: Female

DRUGS (2)
  1. ERYTHROMYCIN [Suspect]
     Indication: LOWER RESPIRATORY TRACT INFECTION
  2. TACROLIMUS [Interacting]
     Indication: HIRSUTISM

REACTIONS (2)
  - DRUG INTERACTION [None]
  - HAEMOLYTIC URAEMIC SYNDROME [None]
